FAERS Safety Report 15562494 (Version 6)
Quarter: 2024Q1

REPORT INFORMATION
  Report Type: Spontaneous
  Country: US (occurrence: US)
  Receive Date: 20181029
  Receipt Date: 20240223
  Transmission Date: 20240410
  Serious: No
  Sender: FDA-Public Use
  Company Number: US-PFIZER INC-2018431252

PATIENT
  Age: 57 Year
  Sex: Male

DRUGS (1)
  1. XELJANZ XR [Suspect]
     Active Substance: TOFACITINIB CITRATE
     Indication: Rheumatoid arthritis
     Dosage: 11 MG, 1X/DAY
     Route: 048

REACTIONS (9)
  - Peripheral swelling [Unknown]
  - Condition aggravated [Unknown]
  - Muscular weakness [Unknown]
  - Fatigue [Unknown]
  - Pain in extremity [Unknown]
  - Pain in jaw [Unknown]
  - Bruxism [Unknown]
  - Musculoskeletal stiffness [Unknown]
  - Pain [Unknown]
